FAERS Safety Report 10802639 (Version 1)
Quarter: 2015Q1

REPORT INFORMATION
  Report Type: Spontaneous
  Country: US (occurrence: US)
  Receive Date: 20150217
  Receipt Date: 20150217
  Transmission Date: 20150721
  Serious: No
  Sender: FDA-Public Use
  Company Number: US-BRACCO-011259

PATIENT
  Sex: Female

DRUGS (1)
  1. ISOVUE 370 [Suspect]
     Active Substance: IOPAMIDOL
     Indication: DIAGNOSTIC PROCEDURE
     Dates: start: 20140801, end: 20140801

REACTIONS (1)
  - Chills [Recovered/Resolved]

NARRATIVE: CASE EVENT DATE: 20140801
